FAERS Safety Report 4568459-7 (Version None)
Quarter: 2005Q1

REPORT INFORMATION
  Report Type: 
  Country: None (occurrence: None)
  Receive Date: 20050131
  Receipt Date: 20050117
  Transmission Date: 20050727
  Serious: Yes (Hospitalization)
  Sender: FDA-Public Use
  Company Number: 2005-124433-NL

PATIENT
  Age: 60 Year
  Sex: Female

DRUGS (11)
  1. MIRTAZAPINE [Suspect]
     Indication: DEPRESSION
     Dosage: 15 MG
     Route: 048
     Dates: start: 20050114
  2. MIRTAZAPINE [Suspect]
     Indication: PSYCHOMOTOR HYPERACTIVITY
     Dosage: 15 MG
     Route: 048
     Dates: start: 20050114
  3. DICLOFENAC SODIUM [Suspect]
     Indication: PAIN
     Dosage: 50 MG
     Route: 048
     Dates: start: 20050113
  4. ATORVASTATIN [Concomitant]
  5. TEMAZEPAM [Concomitant]
  6. ACETYLSALICYLIC ACID [Concomitant]
  7. MAGNESIUM [Concomitant]
  8. BION 3 [Concomitant]
  9. CARNOMAX [Concomitant]
  10. ALOEVERA [Concomitant]
  11. DIOVAN COMP [Concomitant]

REACTIONS (5)
  - ANGER [None]
  - DIZZINESS [None]
  - IRRITABILITY [None]
  - SLEEP DISORDER [None]
  - TENSION [None]
